FAERS Safety Report 9710615 (Version 1)
Quarter: 2013Q4

REPORT INFORMATION
  Report Type: Spontaneous
  Country: US (occurrence: US)
  Receive Date: 20131126
  Receipt Date: 20131126
  Transmission Date: 20140711
  Serious: Yes (Other)
  Sender: FDA-Public Use
  Company Number: US-BAYER-2013-142348

PATIENT
  Age: 29 Year
  Sex: Female
  Weight: 60 kg

DRUGS (5)
  1. YAZ [Suspect]
     Route: 048
  2. SUBOXONE [Concomitant]
  3. CELEXA [Concomitant]
  4. ZANTAC [Concomitant]
  5. KEFLEX [Concomitant]

REACTIONS (2)
  - Cholecystitis chronic [None]
  - Biliary dyskinesia [None]
